FAERS Safety Report 11847272 (Version 1)
Quarter: 2015Q4

REPORT INFORMATION
  Report Type: Spontaneous
  Country: US (occurrence: US)
  Receive Date: 20151217
  Receipt Date: 20151217
  Transmission Date: 20160305
  Serious: Yes (Other)
  Sender: FDA-Public Use
  Company Number: US-ROCHE-254779

PATIENT
  Age: 6 Year
  Sex: Male
  Weight: 23.4 kg

DRUGS (2)
  1. TAMIFLU [Suspect]
     Active Substance: OSELTAMIVIR PHOSPHATE
     Route: 048
     Dates: start: 20010201, end: 20010203
  2. TAMIFLU [Suspect]
     Active Substance: OSELTAMIVIR PHOSPHATE
     Indication: INFLUENZA
     Dosage: TAKEN IN THE EVENING.
     Route: 048
     Dates: start: 20010203, end: 20010203

REACTIONS (4)
  - Contusion [Not Recovered/Not Resolved]
  - Weight increased [Unknown]
  - Overdose [Recovering/Resolving]
  - Rash [Recovering/Resolving]

NARRATIVE: CASE EVENT DATE: 20010201
